FAERS Safety Report 6150302-6 (Version None)
Quarter: 2009Q2

REPORT INFORMATION
  Report Type: 
  Country: None (occurrence: None)
  Receive Date: 20090408
  Receipt Date: 20090408
  Transmission Date: 20091009
  Serious: Yes (Other)
  Sender: FDA-Public Use
  Company Number: None

PATIENT
  Age: 44 Year
  Sex: Male
  Weight: 91.6266 kg

DRUGS (1)
  1. ZITHROMAX [Suspect]

REACTIONS (1)
  - DRUG INEFFECTIVE [None]
